FAERS Safety Report 20368529 (Version 7)
Quarter: 2022Q4

REPORT INFORMATION
  Report Type: Report from Study
  Country: US (occurrence: US)
  Receive Date: 20220124
  Receipt Date: 20221216
  Transmission Date: 20230113
  Serious: Yes (Hospitalization, Other)
  Sender: FDA-Public Use
  Company Number: US-NOVARTISPH-NVSC2022US011910

PATIENT
  Age: 5 Year
  Sex: Female
  Weight: 20.6 kg

DRUGS (11)
  1. TRAMETINIB [Suspect]
     Active Substance: TRAMETINIB
     Indication: Arteriovenous malformation
     Dosage: 0.55 MG, QD
     Route: 048
     Dates: start: 20210109, end: 20220113
  2. TRAMETINIB [Suspect]
     Active Substance: TRAMETINIB
     Dosage: 0.55  MG , QD
     Route: 048
     Dates: start: 20220210, end: 20220410
  3. TRAMETINIB [Suspect]
     Active Substance: TRAMETINIB
     Dosage: 0.5  MG , QD
     Route: 048
     Dates: start: 20210910, end: 20220410
  4. TRAMETINIB [Suspect]
     Active Substance: TRAMETINIB
     Dosage: 0.5 MG, QD
     Route: 048
     Dates: start: 20210109, end: 20220410
  5. MELATONIN [Concomitant]
     Active Substance: MELATONIN
     Indication: Sleep disorder
     Dosage: 4.5 MG
     Route: 065
     Dates: start: 20210304, end: 20220410
  6. MELATONIN [Concomitant]
     Active Substance: MELATONIN
     Dosage: 4.5 MG
     Route: 065
     Dates: start: 20220304
  7. CETIRIZINE HYDROCHLORIDE [Concomitant]
     Active Substance: CETIRIZINE HYDROCHLORIDE
     Indication: Hypersensitivity
     Dosage: 2.5 MG
     Route: 065
     Dates: start: 20220411
  8. ALBUTEROL [Concomitant]
     Active Substance: ALBUTEROL
     Indication: Asthma
     Dosage: NEB Q4HR/PRN
     Route: 065
     Dates: start: 20210820
  9. CEFAZOLIN [Concomitant]
     Active Substance: CEFAZOLIN
     Indication: Product used for unknown indication
     Dosage: 1000 MG, Q8H
     Route: 042
  10. CEFAZOLIN [Concomitant]
     Active Substance: CEFAZOLIN
     Dosage: UNK
     Route: 065
     Dates: start: 20220527
  11. LINEZOLID [Concomitant]
     Active Substance: LINEZOLID
     Indication: Product used for unknown indication
     Dosage: 10 MG/KG, Q8H
     Route: 048
     Dates: start: 20220622, end: 20220708

REACTIONS (19)
  - Staphylococcal infection [Recovered/Resolved]
  - Osteomyelitis [Unknown]
  - Arthralgia [Unknown]
  - Pyrexia [Unknown]
  - Vomiting [Unknown]
  - Expired product administered [Recovered/Resolved]
  - Dermatitis atopic [Unknown]
  - Eczema [Recovering/Resolving]
  - Rash [Unknown]
  - Rash erythematous [Unknown]
  - Xerosis [Unknown]
  - Viral infection [Unknown]
  - Oropharyngeal pain [Unknown]
  - Headache [Unknown]
  - Cough [Unknown]
  - Anaemia [Unknown]
  - Malaise [Unknown]
  - Gait disturbance [Unknown]
  - Drug intolerance [Unknown]

NARRATIVE: CASE EVENT DATE: 20211105
